FAERS Safety Report 17436673 (Version 4)
Quarter: 2020Q3

REPORT INFORMATION
  Report Type: Spontaneous
  Country: US (occurrence: US)
  Receive Date: 20200219
  Receipt Date: 20200909
  Transmission Date: 20201102
  Serious: Yes (Other)
  Sender: FDA-Public Use
  Company Number: US-SA-2020SA043653

PATIENT

DRUGS (1)
  1. CAPRELSA [Suspect]
     Active Substance: VANDETANIB
     Indication: THYROID CANCER
     Dosage: 300 MG, QD
     Route: 048
     Dates: start: 20200118, end: 20200827

REACTIONS (5)
  - Thyroid cancer [Unknown]
  - Drug ineffective [Unknown]
  - Rash [Unknown]
  - Disease progression [Unknown]
  - Diarrhoea [Unknown]
